APPROVED DRUG PRODUCT: BENZAMYCIN
Active Ingredient: BENZOYL PEROXIDE; ERYTHROMYCIN
Strength: 5%;3%
Dosage Form/Route: GEL;TOPICAL
Application: N050557 | Product #001 | TE Code: AB
Applicant: VALEANT INTERNATIONAL SRL
Approved: Oct 26, 1984 | RLD: Yes | RS: Yes | Type: RX